FAERS Safety Report 4677316-7 (Version None)
Quarter: 2005Q2

REPORT INFORMATION
  Report Type: 
  Country: None (occurrence: None)
  Receive Date: 20050531
  Receipt Date: 20050120
  Transmission Date: 20051028
  Serious: Yes (Death, Other)
  Sender: FDA-Public Use
  Company Number: 200510493US

PATIENT
  Sex: Male
  Weight: 74.1 kg

DRUGS (22)
  1. TAXOTERE [Suspect]
     Indication: METASTASES TO BONE
     Dates: start: 20041105, end: 20041105
  2. TAXOTERE [Suspect]
     Indication: PROSTATE CANCER METASTATIC
     Dates: start: 20041105, end: 20041105
  3. LISINOPRIL AND HYDROCHLOROTHIAZIDE [Concomitant]
     Indication: ESSENTIAL HYPERTENSION
     Dosage: DOSE: 20/12.5
  4. ASPIRIN [Concomitant]
  5. VITAMIN E [Concomitant]
     Dosage: DOSE: NOT PROVIDED
  6. VITAMIN D [Concomitant]
     Dosage: DOSE: NOT PROVIDED
  7. CALCIUM GLUCONATE [Concomitant]
     Dosage: DOSE: NOT PROVIDED
  8. LANOXIN [Concomitant]
  9. MEGESTROL ACETATE [Concomitant]
     Indication: ANOREXIA
     Route: 048
  10. CASODEX [Concomitant]
     Indication: PROSTATE CANCER
     Dates: start: 20031001
  11. LUPRON [Concomitant]
     Indication: PROSTATE CANCER
  12. KETOCONAZOLE [Concomitant]
     Indication: PROSTATE CANCER
     Dates: start: 20040301, end: 20041001
  13. B12 [Concomitant]
     Dosage: DOSE: NOT PROVIDED
  14. COMPAZINE [Concomitant]
     Indication: NAUSEA
     Route: 048
     Dates: start: 20041104
  15. KYTRIL [Concomitant]
     Indication: PREMEDICATION
     Route: 042
     Dates: start: 20041104, end: 20051105
  16. DECADRON [Concomitant]
     Indication: PREMEDICATION
     Route: 042
     Dates: start: 20041104, end: 20051105
  17. ZOMETA [Concomitant]
     Dates: start: 20041104, end: 20041104
  18. BENADRYL [Concomitant]
     Indication: PREMEDICATION
     Route: 042
     Dates: start: 20051105, end: 20051105
  19. DILTIAZEM [Concomitant]
     Dosage: DOSE: NOT PROVIDED
     Dates: end: 20041013
  20. TOPROL-XL [Concomitant]
     Dates: end: 20041013
  21. MULTIVITAMINS, PLAIN [Concomitant]
     Dosage: DOSE: NOT RPOVIDED
  22. EMCYT [Concomitant]
     Indication: PROSTATE CANCER
     Dates: start: 20040602, end: 20040714

REACTIONS (12)
  - AMMONIA INCREASED [None]
  - ANAEMIA [None]
  - ASTHENIA [None]
  - BACK PAIN [None]
  - COMA [None]
  - CONFUSIONAL STATE [None]
  - GASTROINTESTINAL HAEMORRHAGE [None]
  - HYPOTENSION [None]
  - METABOLIC ACIDOSIS [None]
  - POST PROCEDURAL HAEMORRHAGE [None]
  - RENAL TUBULAR ACIDOSIS [None]
  - SOMNOLENCE [None]
